FAERS Safety Report 23352279 (Version 2)
Quarter: 2025Q3

REPORT INFORMATION
  Report Type: Report from Study
  Country: EU (occurrence: EU)
  Receive Date: 20231229
  Receipt Date: 20250809
  Transmission Date: 20251021
  Serious: Yes (Other)
  Sender: ALEXION PHARMACEUTICALS
  Company Number: 2023A293960

PATIENT
  Sex: Female
  Weight: 87 kg

DRUGS (2)
  1. OLAPARIB [Suspect]
     Active Substance: OLAPARIB
     Indication: Breast cancer
     Dosage: 2 DOSAGE FORM, BID
     Dates: start: 20230620, end: 20230830
  2. OLAPARIB [Suspect]
     Active Substance: OLAPARIB
     Dosage: 2 DOSAGE FORM, BID
     Dates: start: 202309

REACTIONS (2)
  - Haematotoxicity [Recovered/Resolved]
  - Off label use [Unknown]
